FAERS Safety Report 4948899-4 (Version None)
Quarter: 2006Q1

REPORT INFORMATION
  Report Type: 
  Country: None (occurrence: None)
  Receive Date: 20060321
  Receipt Date: 20060316
  Transmission Date: 20060701
  Serious: Yes (Death)
  Sender: FDA-Public Use
  Company Number: PHEH2006US03531

PATIENT
  Sex: Male

DRUGS (2)
  1. CLOZARIL [Suspect]
     Indication: SCHIZOPHRENIA, PARANOID TYPE
     Dosage: 600 MG, QD
     Route: 048
     Dates: start: 19970401
  2. CLOZARIL [Suspect]
     Dosage: UNK, UNK

REACTIONS (5)
  - HEADACHE [None]
  - HYPERCHOLESTEROLAEMIA [None]
  - HYPERTENSION [None]
  - MENINGITIS [None]
  - OBSESSIVE-COMPULSIVE DISORDER [None]
